FAERS Safety Report 5470218-8 (Version None)
Quarter: 2007Q3

REPORT INFORMATION
  Report Type: 
  Country: None (occurrence: None)
  Receive Date: 20070924
  Receipt Date: 20070906
  Transmission Date: 20080115
  Serious: Yes (Hospitalization, Other)
  Sender: FDA-Public Use
  Company Number: DSA-61725_2007

PATIENT
  Sex: Female
  Weight: 15.8759 kg

DRUGS (1)
  1. DIASTAT [Suspect]
     Indication: CONVULSION
     Dosage: 5 MG PRN RECTAL
     Route: 054
     Dates: start: 20070830

REACTIONS (2)
  - DEVICE MALFUNCTION [None]
  - DRUG INEFFECTIVE [None]
